FAERS Safety Report 6922341-6 (Version None)
Quarter: 2010Q3

REPORT INFORMATION
  Report Type: 
  Country: None (occurrence: None)
  Receive Date: 20100813
  Receipt Date: 20100802
  Transmission Date: 20110219
  Serious: Yes (Death)
  Sender: FDA-Public Use
  Company Number: DE-CEPHALON-2010004106

PATIENT
  Sex: Male
  Weight: 92 kg

DRUGS (2)
  1. TREANDA [Suspect]
     Indication: NON-HODGKIN'S LYMPHOMA
     Dates: start: 20051025, end: 20051124
  2. RITUXIMAB [Suspect]
     Indication: NON-HODGKIN'S LYMPHOMA
     Dates: start: 20051025, end: 20051124

REACTIONS (3)
  - ANAEMIA [None]
  - CARDIAC ARREST [None]
  - CARDIAC FAILURE [None]
